FAERS Safety Report 17986364 (Version 1)
Quarter: 2020Q3

REPORT INFORMATION
  Report Type: Spontaneous
  Country: FR (occurrence: FR)
  Receive Date: 20200706
  Receipt Date: 20200706
  Transmission Date: 20201103
  Serious: Yes (Hospitalization)
  Sender: FDA-Public Use
  Company Number: FR-PURDUE PHARMA-GBR-2020-0077532

PATIENT
  Age: 92 Year
  Sex: Male
  Weight: 69 kg

DRUGS (3)
  1. OXYCONTIN [Suspect]
     Active Substance: OXYCODONE HYDROCHLORIDE
     Indication: PAIN
     Dosage: 20 MG, DAILY (STRENGTH 10 MG)
     Route: 048
  2. OXYNORMORO [Suspect]
     Active Substance: OXYCODONE HYDROCHLORIDE
     Indication: PAIN
     Dosage: 3 DF, DAILY (STRENGTH 5 MG)
     Route: 048
     Dates: start: 202005, end: 20200610
  3. PREGABALIN. [Suspect]
     Active Substance: PREGABALIN
     Indication: PAIN
     Dosage: 600 MG, DAILY
     Route: 048
     Dates: start: 202005, end: 20200610

REACTIONS (1)
  - Drop attacks [Recovered/Resolved]

NARRATIVE: CASE EVENT DATE: 20200608
